FAERS Safety Report 24163236 (Version 1)
Quarter: 2024Q3

REPORT INFORMATION
  Report Type: Spontaneous
  Country: US (occurrence: None)
  Receive Date: 20240801
  Receipt Date: 20240801
  Transmission Date: 20241016
  Serious: Yes (Hospitalization)
  Sender: Public
  Company Number: None

PATIENT
  Age: 17 Year
  Sex: Male
  Weight: 69.2 kg

DRUGS (10)
  1. CYCLOPHOSPHAMIDE [Suspect]
     Active Substance: CYCLOPHOSPHAMIDE
     Dates: end: 20240701
  2. CYTARABINE [Suspect]
     Active Substance: CYTARABINE
     Dates: start: 20240711
  3. DEXAMETHASONE [Suspect]
     Active Substance: DEXAMETHASONE
     Dates: end: 20240512
  4. ZINECARD [Suspect]
     Active Substance: DEXRAZOXANE HYDROCHLORIDE
     Dates: end: 20240603
  5. DOXORUBICIN HYDROCHLORIDE [Suspect]
     Active Substance: DOXORUBICIN HYDROCHLORIDE
     Dates: end: 20240603
  6. METHOTREXATE [Suspect]
     Active Substance: METHOTREXATE
     Dates: end: 20240708
  7. ONCASPAR [Suspect]
     Active Substance: PEGASPARGASE
     Dates: end: 20240513
  8. GLEEVEC [Suspect]
     Active Substance: IMATINIB MESYLATE
     Dates: end: 20240730
  9. THIOGUANINE ANHYDROUS [Suspect]
     Active Substance: THIOGUANINE ANHYDROUS
     Dates: end: 20240713
  10. VINCRISTINE SULFATE [Suspect]
     Active Substance: VINCRISTINE SULFATE
     Dates: end: 20240603

REACTIONS (6)
  - Pneumonia [None]
  - Tachycardia [None]
  - Mucormycosis [None]
  - Hypotension [None]
  - Hepatic steatosis [None]
  - Hepatomegaly [None]

NARRATIVE: CASE EVENT DATE: 20240730
